FAERS Safety Report 5168915-7 (Version None)
Quarter: 2006Q4

REPORT INFORMATION
  Report Type: 
  Country: None (occurrence: None)
  Receive Date: 20061211
  Receipt Date: 20061109
  Transmission Date: 20070319
  Serious: Yes (Other)
  Sender: FDA-Public Use
  Company Number: PHFR2006GB03384

PATIENT
  Age: 52 Year
  Sex: Male
  Weight: 54 kg

DRUGS (4)
  1. ZOMETA [Suspect]
     Indication: MULTIPLE MYELOMA
     Dosage: 4 MG, QD
     Route: 042
     Dates: start: 20020409, end: 20060502
  2. Z-DEX [Concomitant]
     Indication: MULTIPLE MYELOMA
     Route: 048
     Dates: start: 20010501, end: 20010801
  3. AUTOLOGOUS TRANSPLANTATION [Concomitant]
     Indication: MULTIPLE MYELOMA
     Dosage: UNK, UNK
     Dates: start: 20010901
  4. CYCLOPHOSPHAMIDE [Concomitant]
     Indication: MULTIPLE MYELOMA
     Dosage: 100MG/DAY
     Route: 048
     Dates: start: 20050101, end: 20060501

REACTIONS (2)
  - OSTEONECROSIS [None]
  - TOOTH EXTRACTION [None]
